FAERS Safety Report 9674527 (Version 6)
Quarter: 2014Q2

REPORT INFORMATION
  Report Type: Spontaneous
  Country: US (occurrence: US)
  Receive Date: 20131107
  Receipt Date: 20140523
  Transmission Date: 20141212
  Serious: Yes (Other)
  Sender: FDA-Public Use
  Company Number: US-DRREDDYS-USA/USA/13/0033894

PATIENT
  Age: 28 Year
  Sex: Female

DRUGS (2)
  1. ZENATANE [Suspect]
     Indication: PRODUCT USED FOR UNKNOWN INDICATION
     Route: 048
     Dates: start: 20130430, end: 20130529
  2. ZENATANE [Suspect]
     Route: 065
     Dates: start: 20130529, end: 20130630

REACTIONS (2)
  - Normal newborn [Recovered/Resolved]
  - Exposure during pregnancy [Unknown]
